FAERS Safety Report 10391518 (Version 1)
Quarter: 2014Q3

REPORT INFORMATION
  Report Type: Spontaneous
  Country: US (occurrence: US)
  Receive Date: 20140818
  Receipt Date: 20140818
  Transmission Date: 20150326
  Serious: No
  Sender: FDA-Public Use
  Company Number: US-009507513-1408USA010021

PATIENT
  Sex: Male

DRUGS (1)
  1. CLARITIN [Suspect]
     Active Substance: LORATADINE
     Indication: PRURITUS GENERALISED
     Dosage: UNK, UNKNOWN
     Route: 048
     Dates: start: 2010

REACTIONS (4)
  - Therapeutic response changed [Unknown]
  - Off label use [Unknown]
  - Intentional overdose [Unknown]
  - Drug effect decreased [Unknown]
